FAERS Safety Report 9379765 (Version 2)
Quarter: 2014Q2

REPORT INFORMATION
  Report Type: Spontaneous
  Country: CA (occurrence: CA)
  Receive Date: 20130702
  Receipt Date: 20140409
  Transmission Date: 20141212
  Serious: Yes (Death, Other)
  Sender: FDA-Public Use
  Company Number: PHHY2013NL065689

PATIENT
  Age: 73 Year
  Sex: Male

DRUGS (1)
  1. WARFARIN [Suspect]
     Indication: ANTICOAGULANT THERAPY

REACTIONS (9)
  - Death [Fatal]
  - Pulmonary embolism [Unknown]
  - Haematoma [Unknown]
  - Chest pain [Recovering/Resolving]
  - Dysphagia [Recovered/Resolved]
  - Thrombosis [Unknown]
  - Haematuria [Recovering/Resolving]
  - Epistaxis [Recovering/Resolving]
  - Hypophagia [Unknown]
